FAERS Safety Report 9723933 (Version 1)
Quarter: 2013Q4

REPORT INFORMATION
  Report Type: Spontaneous
  Country: US (occurrence: US)
  Receive Date: 20131202
  Receipt Date: 20131202
  Transmission Date: 20140711
  Serious: No
  Sender: FDA-Public Use
  Company Number: US-AMGEN-USASP2013078320

PATIENT
  Age: 67 Year
  Sex: Female
  Weight: 83.9 kg

DRUGS (4)
  1. ENBREL [Suspect]
     Indication: RHEUMATOID ARTHRITIS
     Dosage: UNK
     Route: 065
  2. METFORMIN [Concomitant]
     Indication: DIABETES MELLITUS
     Dosage: 500 MG, QD
  3. NORVASC [Concomitant]
     Indication: HYPERTENSION
     Dosage: 25 MG, QD
  4. MONTELUKAST SODIUM [Concomitant]
     Indication: ASTHMA
     Dosage: UNK

REACTIONS (1)
  - Injection site erythema [Recovered/Resolved]
